FAERS Safety Report 6222520-X (Version None)
Quarter: 2009Q2

REPORT INFORMATION
  Report Type: 
  Country: None (occurrence: None)
  Receive Date: 20090609
  Receipt Date: 20090609
  Transmission Date: 20091009
  Serious: Yes (Life-Threatening)
  Sender: FDA-Public Use
  Company Number: None

PATIENT
  Sex: Female
  Weight: 77.1115 kg

DRUGS (1)
  1. ENBREL [Suspect]
     Indication: RHEUMATOID ARTHRITIS
     Dosage: AUTOINJECTOR ONCE WEEK IM
     Route: 030
     Dates: start: 20090426, end: 20090502

REACTIONS (2)
  - BLOOD GLUCOSE INCREASED [None]
  - TYPE IV HYPERSENSITIVITY REACTION [None]
